FAERS Safety Report 7289875-9 (Version None)
Quarter: 2011Q1

REPORT INFORMATION
  Report Type: 
  Country: None (occurrence: None)
  Receive Date: 20110214
  Receipt Date: 20110204
  Transmission Date: 20110831
  Serious: Yes (Hospitalization, Other)
  Sender: FDA-Public Use
  Company Number: US-AMGEN-USASP2011007008

PATIENT
  Age: 35 Year
  Sex: Male

DRUGS (1)
  1. EPOGEN [Suspect]
     Indication: RENAL FAILURE CHRONIC
     Dates: start: 20100317, end: 20110111

REACTIONS (3)
  - HAEMOGLOBIN DECREASED [None]
  - ANTIBODY TEST POSITIVE [None]
  - HAEMOGLOBIN ABNORMAL [None]
